FAERS Safety Report 4313694-6 (Version None)
Quarter: 2004Q1

REPORT INFORMATION
  Report Type: 
  Country: None (occurrence: None)
  Receive Date: 20040305
  Receipt Date: 20040225
  Transmission Date: 20041129
  Serious: Yes (Hospitalization, Other)
  Sender: FDA-Public Use
  Company Number: USA-2003-0008817

PATIENT
  Age: 47 Year
  Sex: Male
  Weight: 103.9 kg

DRUGS (11)
  1. OXYCONTIN [Suspect]
     Indication: PAIN
     Dosage: SEE IMAGE
     Dates: start: 19990311
  2. ROXICODONE [Concomitant]
  3. LIPITOR [Concomitant]
  4. ZESTRIL [Concomitant]
  5. DARVOCET-N 100 [Concomitant]
  6. ATIVAN [Concomitant]
  7. AMBIEN (OLPIDEM TARTRATE) [Concomitant]
  8. DILAUDID [Concomitant]
  9. SOMA [Concomitant]
  10. XANAX [Concomitant]
  11. LORCET-HD [Concomitant]

REACTIONS (39)
  - AFFECT LABILITY [None]
  - AFFECTIVE DISORDER [None]
  - AGGRESSION [None]
  - ANXIETY [None]
  - ASTHENIA [None]
  - CONFUSIONAL STATE [None]
  - DEPRESSION [None]
  - DIARRHOEA [None]
  - DISTURBANCE IN ATTENTION [None]
  - DRUG ABUSER [None]
  - DRUG DEPENDENCE [None]
  - DRUG INEFFECTIVE [None]
  - DRUG TOLERANCE [None]
  - DRUG WITHDRAWAL SYNDROME [None]
  - EXCORIATION [None]
  - HALLUCINATION, AUDITORY [None]
  - HALLUCINATION, VISUAL [None]
  - HEADACHE [None]
  - HOMICIDAL IDEATION [None]
  - HYPOAESTHESIA [None]
  - INSOMNIA [None]
  - IRRITABILITY [None]
  - MOOD SWINGS [None]
  - MUSCLE CRAMP [None]
  - NAUSEA [None]
  - NERVOUSNESS [None]
  - NIGHT SWEATS [None]
  - PAIN IN EXTREMITY [None]
  - POLYURIA [None]
  - PSYCHOTIC DISORDER [None]
  - SELF INJURIOUS BEHAVIOUR [None]
  - SOCIAL AVOIDANT BEHAVIOUR [None]
  - SUICIDAL IDEATION [None]
  - TREMOR [None]
  - VISION BLURRED [None]
  - VISUAL DISTURBANCE [None]
  - VOMITING [None]
  - WEIGHT DECREASED [None]
  - WEIGHT INCREASED [None]
